FAERS Safety Report 10358130 (Version 3)
Quarter: 2014Q3

REPORT INFORMATION
  Report Type: Spontaneous
  Country: US (occurrence: US)
  Receive Date: 20140801
  Receipt Date: 20140926
  Transmission Date: 20150326
  Serious: Yes (Life-Threatening, Hospitalization, Other)
  Sender: FDA-Public Use
  Company Number: US-BAYER-2014-112843

PATIENT
  Age: 34 Year
  Sex: Female
  Weight: 61 kg

DRUGS (4)
  1. ALEVE [Concomitant]
     Active Substance: NAPROXEN SODIUM
  2. MIRENA [Suspect]
     Active Substance: LEVONORGESTREL
     Indication: CONTRACEPTION
     Dosage: 20 MCG/24HR, CONT
     Route: 015
     Dates: start: 20081210, end: 20120905
  3. MULTIVITAMIN [Concomitant]
     Active Substance: VITAMINS
  4. PARAGARD T380A [Concomitant]
     Active Substance: COPPER
     Dosage: UNK
     Dates: start: 20111025

REACTIONS (5)
  - Infection [None]
  - General physical health deterioration [None]
  - Injury [None]
  - Abdominal pain [None]
  - Uterine perforation [None]

NARRATIVE: CASE EVENT DATE: 201208
